FAERS Safety Report 20607174 (Version 1)
Quarter: 2022Q1

REPORT INFORMATION
  Report Type: Spontaneous
  Country: US (occurrence: US)
  Receive Date: 20220317
  Receipt Date: 20220317
  Transmission Date: 20220423
  Serious: Yes (Other)
  Sender: FDA-Public Use
  Company Number: US-UNITED THERAPEUTICS-UNT-2022-005639

PATIENT
  Age: 67 Year
  Sex: Female
  Weight: 78.322 kg

DRUGS (2)
  1. REMODULIN [Suspect]
     Active Substance: TREPROSTINIL
     Indication: Pulmonary arterial hypertension
     Dosage: UNK UNK, CONTINUING
     Route: 058
     Dates: start: 20211109
  2. REMODULIN [Suspect]
     Active Substance: TREPROSTINIL
     Dosage: 0.058 ?G/KG, CONTINUING
     Route: 058

REACTIONS (8)
  - Cellulitis [Unknown]
  - Intentional medical device removal by patient [Unknown]
  - Infusion site haemorrhage [Unknown]
  - Purulent discharge [Unknown]
  - Infusion site erythema [Unknown]
  - Infusion site infection [Unknown]
  - Infusion site discharge [Unknown]
  - Infusion site pain [Unknown]

NARRATIVE: CASE EVENT DATE: 20220309
